FAERS Safety Report 6041087-2 (Version None)
Quarter: 2009Q1

REPORT INFORMATION
  Report Type: 
  Country: None (occurrence: None)
  Receive Date: 20090116
  Receipt Date: 20080827
  Transmission Date: 20090719
  Serious: Yes (Disabling)
  Sender: FDA-Public Use
  Company Number: US-BRISTOL-MYERS SQUIBB COMPANY-14304315

PATIENT
  Age: 73 Year
  Sex: Female

DRUGS (13)
  1. ABILIFY [Suspect]
     Indication: BIPOLAR DISORDER
     Dosage: 1 DOSAGE FORM = TABLET . VARIABLE DOSES 5MG,10MG,15MG + 7.5MG.
     Route: 048
     Dates: start: 20061001, end: 20080501
  2. ABILIFY [Suspect]
     Indication: DEPRESSION
     Dosage: 1 DOSAGE FORM = TABLET . VARIABLE DOSES 5MG,10MG,15MG + 7.5MG.
     Route: 048
     Dates: start: 20061001, end: 20080501
  3. LAMOTRIGINE [Concomitant]
  4. BUPROPION HCL [Concomitant]
     Dosage: 1 DOSAGE FORM = 150 (UNIT NOT SPECIFIED).
  5. TOPIRAMATE [Concomitant]
  6. CLONAZEPAM [Concomitant]
     Dosage: 1 DOSAGE FORM = 0.5(UNIT NOT SPECIFIED).
  7. ZOLPIDEM [Concomitant]
     Dosage: 1 DOSAGE FORM = 5 TO 10MG HS PRN
  8. LEVOTHYROXINE SODIUM [Concomitant]
  9. ASPIRIN [Concomitant]
  10. MOBIC [Concomitant]
     Dosage: 1 DOSAGE FORM = 7.5 (UNIT NOT SPECIFIED).
  11. OMEPRAZOLE [Concomitant]
  12. CALCIUM + VITAMIN D [Concomitant]
  13. VICON FORTE [Concomitant]

REACTIONS (2)
  - DYSTONIA [None]
  - RASH [None]
